FAERS Safety Report 8582292-0 (Version None)
Quarter: 2012Q3

REPORT INFORMATION
  Report Type: 
  Country: None (occurrence: None)
  Receive Date: 20120727
  Receipt Date: 20120719
  Transmission Date: 20120928
  Serious: Yes (Other)
  Sender: FDA-Public Use
  Company Number: AUR-APL-2012-03135

PATIENT
  Age: 72 Year
  Sex: Female
  Weight: 61.3 kg

DRUGS (6)
  1. ASPIRIN [Concomitant]
  2. INDAPAMIDE [Concomitant]
  3. ZEROBASE (PARAFFIN) [Concomitant]
  4. LAMOTRIGINE [Suspect]
     Indication: PRODUCT USED FOR UNKNOWN INDICATION
     Dates: start: 20120427
  5. DIPROBASE (DIPROBASE /01210201/) [Concomitant]
  6. DIPYRIDAMOLE [Concomitant]

REACTIONS (1)
  - TOXIC EPIDERMAL NECROLYSIS [None]
